FAERS Safety Report 5009045-4 (Version None)
Quarter: 2006Q2

REPORT INFORMATION
  Report Type: 
  Country: None (occurrence: None)
  Receive Date: 20060523
  Receipt Date: 20051109
  Transmission Date: 20061013
  Serious: Yes (Hospitalization)
  Sender: FDA-Public Use
  Company Number: JP-BOEHRINGER INGELHEIM PHARMACEUTICALS, INC.-2005-BP-19747NB

PATIENT
  Sex: Male
  Weight: 66 kg

DRUGS (10)
  1. SPIRIVA [Suspect]
     Indication: EMPHYSEMA
     Route: 055
     Dates: start: 20050322, end: 20051108
  2. MICARDIS [Concomitant]
     Indication: HYPERTENSION
     Route: 048
  3. ASPIRIN [Concomitant]
     Indication: ATRIAL FIBRILLATION
     Route: 048
     Dates: start: 20050309
  4. DIGOXIN [Concomitant]
     Indication: ATRIAL FIBRILLATION
     Route: 048
  5. ALDACTONE [Concomitant]
     Indication: CARDIAC FAILURE
     Route: 048
  6. LASIX [Concomitant]
     Indication: CARDIAC FAILURE
     Route: 048
  7. ROCORNAL [Concomitant]
     Indication: ANGINA PECTORIS
     Route: 048
  8. MILLIS (NITROGLYCERIN) [Concomitant]
     Indication: ANGINA PECTORIS
     Route: 062
     Dates: start: 20051104
  9. NORVASC [Concomitant]
     Route: 048
     Dates: start: 20050309
  10. THEO-DUR [Concomitant]
     Route: 048

REACTIONS (1)
  - CARDIAC FAILURE CONGESTIVE [None]
